FAERS Safety Report 7249550-3 (Version None)
Quarter: 2011Q1

REPORT INFORMATION
  Report Type: 
  Country: None (occurrence: None)
  Receive Date: 20110121
  Receipt Date: 20110121
  Transmission Date: 20110831
  Serious: Yes (Hospitalization)
  Sender: FDA-Public Use
  Company Number: None

PATIENT
  Sex: Male
  Weight: 83.4 kg

DRUGS (5)
  1. PREDNISONE TAB [Suspect]
     Dosage: 400 MG
  2. VINCRISTINE SULFATE [Suspect]
     Dosage: 2 MG
  3. DOXORUBICIN HCL [Suspect]
     Dosage: 104.5 MG
  4. RITUXIMAB (MOAB C2B8 ANTI CD20, CHIMERIC) [Suspect]
     Dosage: 783.75 MG
  5. CYCLOPHOSPHAMIDE [Suspect]
     Dosage: 1567.5 MG

REACTIONS (14)
  - WEIGHT DECREASED [None]
  - HYPOTENSION [None]
  - DYSPHAGIA [None]
  - BRAIN NATRIURETIC PEPTIDE INCREASED [None]
  - DECREASED APPETITE [None]
  - INTERNATIONAL NORMALISED RATIO DECREASED [None]
  - ADRENAL INSUFFICIENCY [None]
  - FLUID OVERLOAD [None]
  - SINUSITIS [None]
  - ELECTROCARDIOGRAM ST-T CHANGE [None]
  - TACHYCARDIA [None]
  - HEMIPARESIS [None]
  - DIZZINESS [None]
  - FEBRILE NEUTROPENIA [None]
